FAERS Safety Report 9179334 (Version 2)
Quarter: 2015Q4

REPORT INFORMATION
  Report Type: Spontaneous
  Country: US (occurrence: US)
  Receive Date: 20130321
  Receipt Date: 20151228
  Transmission Date: 20160305
  Serious: Yes (Death)
  Sender: FDA-Public Use
  Company Number: US-SANOFI-AVENTIS-2013SA028516

PATIENT
  Age: 74 Year
  Sex: Male

DRUGS (33)
  1. COUMADIN [Concomitant]
     Active Substance: WARFARIN SODIUM
  2. FIBER [Concomitant]
     Active Substance: PSYLLIUM HUSK
     Route: 048
  3. FLUOXETINE HYDROCHLORIDE. [Concomitant]
     Active Substance: FLUOXETINE HYDROCHLORIDE
     Dosage: FREQUENCY: Q AM
     Route: 048
  4. VITAMIN C [Concomitant]
     Active Substance: ASCORBIC ACID
     Route: 048
  5. DOXAZOSIN [Concomitant]
     Active Substance: DOXAZOSIN\DOXAZOSIN MESYLATE
  6. LEVOXYL [Concomitant]
     Active Substance: LEVOTHYROXINE SODIUM
  7. CHONDROITIN SULFATE/GLUCOSAMINE [Concomitant]
     Route: 048
  8. CARDURA [Concomitant]
     Active Substance: DOXAZOSIN MESYLATE
  9. PANTHENOL/RETINOL/THIAMINE HYDROCHLORIDE/ASCORBIC ACID/ERGOCALCIFEROL/FOLIC ACID/RIBOFLAVIN/NICOTINA [Concomitant]
  10. METOPROLOL SUCCINATE. [Concomitant]
     Active Substance: METOPROLOL SUCCINATE
     Dosage: SUSTAINED RELEASE TABLET
     Route: 048
  11. DILTIAZEM [Concomitant]
     Active Substance: DILTIAZEM
  12. PROZAC [Concomitant]
     Active Substance: FLUOXETINE HYDROCHLORIDE
  13. ECOTRIN [Concomitant]
     Active Substance: ASPIRIN
  14. KEFLEX [Concomitant]
     Active Substance: CEPHALEXIN
  15. NITROSTAT [Concomitant]
     Active Substance: NITROGLYCERIN
  16. LIPITOR [Concomitant]
     Active Substance: ATORVASTATIN CALCIUM
     Route: 048
  17. KLOR-CON [Concomitant]
     Active Substance: POTASSIUM CHLORIDE
     Dosage: SUSTAINED ACTION TABLET
     Route: 048
  18. LISINOPRIL. [Concomitant]
     Active Substance: LISINOPRIL
     Route: 048
  19. LORTAB [Concomitant]
     Active Substance: ACETAMINOPHEN\HYDROCODONE BITARTRATE
  20. ASPIRIN. [Suspect]
     Active Substance: ASPIRIN
     Indication: PRODUCT USED FOR UNKNOWN INDICATION
  21. AVODART [Concomitant]
     Active Substance: DUTASTERIDE
     Route: 048
  22. DIGOXIN. [Concomitant]
     Active Substance: DIGOXIN
     Route: 048
  23. NORVASC [Concomitant]
     Active Substance: AMLODIPINE BESYLATE
     Dosage: FREQUENCY: Q AM
     Route: 048
  24. GLUCOSAMINE [Concomitant]
     Active Substance: GLUCOSAMINE
  25. PLAVIX [Suspect]
     Active Substance: CLOPIDOGREL BISULFATE
     Route: 065
     Dates: start: 20070316, end: 20110327
  26. LASIX [Concomitant]
     Active Substance: FUROSEMIDE
     Dosage: FREQUENCY: QD/ PRN
     Route: 048
  27. LEVOTHYROXINE SODIUM. [Concomitant]
     Active Substance: LEVOTHYROXINE SODIUM
     Route: 048
  28. ALTACE [Concomitant]
     Active Substance: RAMIPRIL
  29. LENOXIN [Concomitant]
  30. MECLIZINE [Concomitant]
     Active Substance: MECLIZINE\MECLIZINE HYDROCHLORIDE
     Dosage: 1-2 TABLET
     Route: 048
  31. VITAMIN E [Concomitant]
     Active Substance: .ALPHA.-TOCOPHEROL
     Route: 048
  32. DIGITEK [Concomitant]
     Active Substance: DIGOXIN
  33. LOTENSIN [Concomitant]
     Active Substance: BENAZEPRIL HYDROCHLORIDE

REACTIONS (2)
  - Cerebral haemorrhage [Fatal]
  - Brain stem haemorrhage [Fatal]

NARRATIVE: CASE EVENT DATE: 201103
